FAERS Safety Report 10725037 (Version 1)
Quarter: 2015Q1

REPORT INFORMATION
  Report Type: Spontaneous
  Country: US (occurrence: None)
  Receive Date: 20150116
  Receipt Date: 20150116
  Transmission Date: 20150721
  Serious: Yes (Hospitalization, Other)
  Sender: FDA-Public Use
  Company Number: US-ZYDUS-006435

PATIENT
  Age: 65 Year
  Sex: Male

DRUGS (10)
  1. SERTRALINE [Suspect]
     Active Substance: SERTRALINE HYDROCHLORIDE
  2. CLONAZEPAM (CLONAZEPAM) [Suspect]
     Active Substance: CLONAZEPAM
  3. VENLAFAXINE [Suspect]
     Active Substance: VENLAFAXINE HYDROCHLORIDE
  4. RIVASTIGMINE (RIVASTIGMINE) PATCH [Suspect]
     Active Substance: RIVASTIGMINE
  5. PRIMIDONE. [Suspect]
     Active Substance: PRIMIDONE
  6. LISINOPRIL. [Concomitant]
     Active Substance: LISINOPRIL
  7. VITAMINS [Concomitant]
     Active Substance: VITAMINS
  8. SODIUM CHLORIDE. [Concomitant]
     Active Substance: SODIUM CHLORIDE
  9. OXCARBAZEPINE (OXCARBAZEPINE) [Suspect]
     Active Substance: OXCARBAZEPINE
  10. RISPERIDONE (RISPERIDONE) [Suspect]
     Active Substance: RISPERIDONE

REACTIONS (5)
  - Inappropriate antidiuretic hormone secretion [None]
  - Mental status changes [None]
  - Wrist fracture [None]
  - Fall [None]
  - Hyponatraemia [None]
